FAERS Safety Report 7539788-X (Version None)
Quarter: 2011Q2

REPORT INFORMATION
  Report Type: 
  Country: None (occurrence: None)
  Receive Date: 20110610
  Receipt Date: 20110602
  Transmission Date: 20111010
  Serious: Yes (Hospitalization, Other)
  Sender: FDA-Public Use
  Company Number: US-MYLANLABS-2011S1011435

PATIENT
  Sex: Male

DRUGS (3)
  1. MORPHINE [Concomitant]
     Indication: PAIN
     Dates: start: 20090329, end: 20090329
  2. FENTANYL-100 [Suspect]
     Indication: PAIN
     Dosage: CHANGE Q3D
     Route: 062
     Dates: start: 20090329
  3. OXYCODONE HCL [Concomitant]
     Indication: PAIN
     Dates: start: 20090329, end: 20090329

REACTIONS (7)
  - CARDIAC ARREST [None]
  - ISCHAEMIC HEPATITIS [None]
  - RENAL FAILURE ACUTE [None]
  - OVERDOSE [None]
  - AMNESIA [None]
  - NERVOUS SYSTEM DISORDER [None]
  - RESPIRATORY FAILURE [None]
